FAERS Safety Report 12632507 (Version 2)
Quarter: 2016Q3

REPORT INFORMATION
  Report Type: Spontaneous
  Country: US (occurrence: US)
  Receive Date: 20160808
  Receipt Date: 20160808
  Transmission Date: 20161109
  Serious: No
  Sender: FDA-Public Use
  Company Number: US-BEH-2016062471

PATIENT
  Sex: Female
  Weight: 86 kg

DRUGS (15)
  1. FLUVOXAMINE MALEATE. [Concomitant]
     Active Substance: FLUVOXAMINE MALEATE
  2. ALPRAZOLAM. [Concomitant]
     Active Substance: ALPRAZOLAM
  3. CENTRUM [Concomitant]
     Active Substance: VITAMINS
  4. DICLEGIS [Concomitant]
     Active Substance: DOXYLAMINE SUCCINATE\PYRIDOXINE HYDROCHLORIDE
  5. HIZENTRA [Suspect]
     Active Substance: HUMAN IMMUNOGLOBULIN G
     Indication: HUMORAL IMMUNE DEFECT
     Route: 058
  6. DIPHENHYDRAMINE. [Concomitant]
     Active Substance: DIPHENHYDRAMINE
  7. PENICILLIN [Concomitant]
     Active Substance: PENICILLIN
  8. VITAMIN D3 [Concomitant]
     Active Substance: CHOLECALCIFEROL
  9. XANAX [Concomitant]
     Active Substance: ALPRAZOLAM
  10. PROBIOTIC [Concomitant]
     Active Substance: PROBIOTICS NOS
  11. EPIPEN [Concomitant]
     Active Substance: EPINEPHRINE
  12. ONDANSETRON [Concomitant]
     Active Substance: ONDANSETRON
  13. MINASTRIN 24FE [Concomitant]
  14. ACETAMINOPHEN. [Concomitant]
     Active Substance: ACETAMINOPHEN
  15. LIDOCAINE. [Concomitant]
     Active Substance: LIDOCAINE

REACTIONS (1)
  - Musculoskeletal stiffness [Unknown]
